FAERS Safety Report 12452758 (Version 4)
Quarter: 2016Q3

REPORT INFORMATION
  Report Type: Spontaneous
  Country: GR (occurrence: GR)
  Receive Date: 20160609
  Receipt Date: 20160929
  Transmission Date: 20161109
  Serious: Yes (Death, Hospitalization, Other)
  Sender: FDA-Public Use
  Company Number: GR-CELGENEUS-GRC-2016056024

PATIENT
  Age: 44 Year
  Sex: Female

DRUGS (1)
  1. ABRAXANE [Suspect]
     Active Substance: PACLITAXEL
     Indication: BREAST CANCER METASTATIC
     Route: 041
     Dates: start: 201605

REACTIONS (8)
  - Hypotension [Unknown]
  - Cytopenia [Fatal]
  - Ileus [Fatal]
  - Renal failure [Unknown]
  - Oliguria [Unknown]
  - Constipation [Unknown]
  - Septic shock [Fatal]
  - Diarrhoea [Unknown]

NARRATIVE: CASE EVENT DATE: 201605
